FAERS Safety Report 4393306-6 (Version None)
Quarter: 2004Q3

REPORT INFORMATION
  Report Type: 
  Country: None (occurrence: None)
  Receive Date: 20040701
  Receipt Date: 20040615
  Transmission Date: 20050211
  Serious: Yes (Other)
  Sender: FDA-Public Use
  Company Number: EWC040539412

PATIENT
  Age: 47 Year
  Sex: Male

DRUGS (2)
  1. GEMCITABINE HYDROCHLORIDE-IV (GEMCITABINE) [Suspect]
     Indication: LUNG NEOPLASM MALIGNANT
     Dosage: 2 G/2 OTHER
     Route: 050
     Dates: start: 20040202, end: 20040426
  2. CISPLATIN [Concomitant]

REACTIONS (2)
  - CHOKING [None]
  - TRACHEITIS [None]
